FAERS Safety Report 13738463 (Version 1)
Quarter: 2017Q3

REPORT INFORMATION
  Report Type: Report from Study
  Country: US (occurrence: US)
  Receive Date: 20170710
  Receipt Date: 20170710
  Transmission Date: 20171127
  Serious: Yes (Other)
  Sender: FDA-Public Use
  Company Number: US-SAOL THERAPEUTICS-2016SAO01263

PATIENT
  Age: 51 Year
  Sex: Female

DRUGS (6)
  1. BUPIVCAINE [Suspect]
     Active Substance: BUPIVACAINE
     Dosage: 16.592 MG, \DAY
     Route: 037
     Dates: start: 20160916
  2. COMPOUNDED BACLOFEN [Suspect]
     Active Substance: BACLOFEN
     Dosage: 414.8 ?G, \DAY
     Route: 037
     Dates: start: 20160916
  3. DILAUDID [Suspect]
     Active Substance: HYDROMORPHONE HYDROCHLORIDE
     Dosage: 2.998 MG, \DAY
     Route: 037
  4. BUPIVACAINE. [Suspect]
     Active Substance: BUPIVACAINE
     Dosage: 11.992 MG, \DAY
     Route: 037
  5. COMPOUNDED BACLOFEN [Suspect]
     Active Substance: BACLOFEN
     Dosage: 299.79 ?G, \DAY
     Route: 037
  6. DILAUDID [Suspect]
     Active Substance: HYDROMORPHONE HYDROCHLORIDE
     Dosage: 4.148 MG, \DAY
     Route: 037
     Dates: start: 20160916

REACTIONS (4)
  - Pain [Recovered/Resolved]
  - Feeling abnormal [Recovered/Resolved]
  - Device failure [Recovered/Resolved]
  - Drug withdrawal syndrome [Recovered/Resolved]

NARRATIVE: CASE EVENT DATE: 20161209
